FAERS Safety Report 23145532 (Version 1)
Quarter: 2023Q4

REPORT INFORMATION
  Report Type: Spontaneous
  Country: RO (occurrence: RO)
  Receive Date: 20231103
  Receipt Date: 20231103
  Transmission Date: 20240109
  Serious: Yes (Other)
  Sender: FDA-Public Use
  Company Number: RO-009507513-2307ROU000715

PATIENT
  Age: 50 Year
  Sex: Female

DRUGS (2)
  1. PEMETREXED [Suspect]
     Active Substance: PEMETREXED
     Indication: Lung adenocarcinoma stage IV
     Dosage: UNK UNK, CYCLICAL
     Route: 065
  2. PEMBROLIZUMAB [Suspect]
     Active Substance: PEMBROLIZUMAB
     Indication: Lung adenocarcinoma stage IV
     Dosage: 380 MILLIGRAM, CYCLICAL
     Route: 058

REACTIONS (4)
  - Colitis erosive [Unknown]
  - Product use issue [Unknown]
  - Incorrect dose administered [Unknown]
  - Incorrect route of product administration [Unknown]
